FAERS Safety Report 18571690 (Version 6)
Quarter: 2022Q3

REPORT INFORMATION
  Report Type: Report from Study
  Country: US (occurrence: US)
  Receive Date: 20201202
  Receipt Date: 20220902
  Transmission Date: 20221027
  Serious: Yes (Hospitalization, Other)
  Sender: FDA-Public Use
  Company Number: US-TAKEDA-US202027334

PATIENT
  Age: 68 Year
  Sex: Male

DRUGS (2)
  1. HUMAN IMMUNOGLOBULIN G [Suspect]
     Active Substance: HUMAN IMMUNOGLOBULIN G
     Indication: Primary immunodeficiency syndrome
     Dosage: 23 GRAM, Q2WEEKS
     Route: 065
  2. GAMMAGARD LIQUID [Suspect]
     Active Substance: HUMAN IMMUNOGLOBULIN G
     Indication: Primary immunodeficiency syndrome
     Route: 042

REACTIONS (27)
  - Stress [Unknown]
  - Lymphoedema [Unknown]
  - Condition aggravated [Unknown]
  - Sinusitis [Unknown]
  - Tonsillar hypertrophy [Unknown]
  - Lymphadenopathy [Unknown]
  - Aphonia [Unknown]
  - Skin infection [Unknown]
  - Dry skin [Unknown]
  - Dehydration [Unknown]
  - Petechiae [Unknown]
  - Rash macular [Unknown]
  - Skin atrophy [Unknown]
  - Crying [Unknown]
  - Dizziness [Unknown]
  - Dyspnoea [Unknown]
  - Pneumothorax [Unknown]
  - Pulmonary hypertension [Unknown]
  - Respiratory failure [Unknown]
  - Cardiac failure [Unknown]
  - Blood immunoglobulin G increased [Unknown]
  - Influenza like illness [Unknown]
  - Fatigue [Unknown]
  - Head discomfort [Unknown]
  - Ear discomfort [Unknown]
  - Dysphonia [Unknown]
  - Feeling abnormal [Unknown]

NARRATIVE: CASE EVENT DATE: 20200821
